FAERS Safety Report 8788085 (Version 2)
Quarter: 2012Q4

REPORT INFORMATION
  Report Type: 
  Country: JP (occurrence: JP)
  Receive Date: 20120914
  Receipt Date: 20121024
  Transmission Date: 20130627
  Serious: Yes (Disabling)
  Sender: FDA-Public Use
  Company Number: JP-ELI_LILLY_AND_COMPANY-JP201209002868

PATIENT
  Age: 65 Year
  Sex: Male

DRUGS (4)
  1. ALIMTA [Suspect]
     Indication: NON-SMALL CELL LUNG CANCER
     Dosage: 845 mg, UNK
     Route: 042
     Dates: start: 20120905, end: 20120905
  2. BEVACIZUMAB [Concomitant]
     Indication: NON-SMALL CELL LUNG CANCER
     Dosage: 965 mg, UNK
     Route: 042
     Dates: start: 20120905, end: 20120905
  3. FRESMIN S [Concomitant]
     Dosage: UNK
     Route: 030
     Dates: start: 20120829, end: 20120829
  4. PANVITAN [Concomitant]
     Dosage: UNK
     Route: 048
     Dates: start: 20120829, end: 20120911

REACTIONS (1)
  - Intestinal perforation [Recovered/Resolved with Sequelae]
